FAERS Safety Report 16245216 (Version 1)
Quarter: 2019Q2

REPORT INFORMATION
  Report Type: Spontaneous
  Country: US (occurrence: US)
  Receive Date: 20190426
  Receipt Date: 20190426
  Transmission Date: 20190711
  Serious: No
  Sender: FDA-Public Use
  Company Number: US-PFIZER INC-2019176816

PATIENT
  Age: 39 Year
  Sex: Female
  Weight: 95 kg

DRUGS (2)
  1. XELJANZ [Suspect]
     Active Substance: TOFACITINIB CITRATE
     Indication: PSORIATIC ARTHROPATHY
     Dosage: 5 MG, 2X/DAY
     Route: 048
  2. XELJANZ [Suspect]
     Active Substance: TOFACITINIB CITRATE
     Indication: PAIN

REACTIONS (7)
  - Depression [Unknown]
  - Glossodynia [Recovering/Resolving]
  - Sinusitis [Unknown]
  - Immune system disorder [Unknown]
  - Product dose omission [Unknown]
  - Malaise [Unknown]
  - Back pain [Unknown]

NARRATIVE: CASE EVENT DATE: 2019
